FAERS Safety Report 7512549-3 (Version None)
Quarter: 2011Q2

REPORT INFORMATION
  Report Type: 
  Country: None (occurrence: None)
  Receive Date: 20110525
  Receipt Date: 20110525
  Transmission Date: 20111010
  Serious: Yes (Life-Threatening, Hospitalization)
  Sender: FDA-Public Use
  Company Number: None

PATIENT
  Age: 78 Year
  Sex: Male
  Weight: 77.1115 kg

DRUGS (1)
  1. PRADAXA [Suspect]
     Indication: ATRIAL FIBRILLATION
     Dosage: 2 CAPSULES DAILY OTHER
     Route: 050
     Dates: start: 20101201, end: 20101225

REACTIONS (3)
  - VISUAL FIELD DEFECT [None]
  - GASTROOESOPHAGEAL REFLUX DISEASE [None]
  - PAIN [None]
